FAERS Safety Report 5028462-X (Version None)
Quarter: 2006Q2

REPORT INFORMATION
  Report Type: 
  Country: None (occurrence: None)
  Receive Date: 20060617
  Receipt Date: 20060614
  Transmission Date: 20061013
  Serious: Yes (Other)
  Sender: FDA-Public Use
  Company Number: US-GLAXOSMITHKLINE-A0609203A

PATIENT
  Sex: Male

DRUGS (5)
  1. REQUIP [Suspect]
     Indication: PARKINSON'S DISEASE
     Dosage: 5MG FOUR TIMES PER DAY
  2. STALEVO 100 [Concomitant]
  3. DETROL LA [Concomitant]
  4. LEXAPRO [Concomitant]
  5. TRICOR [Concomitant]

REACTIONS (3)
  - HALLUCINATION [None]
  - OBSESSIVE-COMPULSIVE DISORDER [None]
  - SEXUAL DYSFUNCTION [None]
